FAERS Safety Report 23031849 (Version 1)
Quarter: 2023Q4

REPORT INFORMATION
  Report Type: Spontaneous
  Country: US (occurrence: US)
  Receive Date: 20231005
  Receipt Date: 20231005
  Transmission Date: 20240110
  Serious: Yes (Hospitalization)
  Sender: FDA-Public Use
  Company Number: US-CTI BIOPHARMA-2023US04107

PATIENT

DRUGS (17)
  1. VONJO [Suspect]
     Active Substance: PACRITINIB
     Indication: Myelofibrosis
     Dosage: 200 MG, BID
     Route: 048
     Dates: start: 20230504
  2. AMOXICILLIN [Concomitant]
     Active Substance: AMOXICILLIN
  3. ACETAMINOPHEN [Concomitant]
     Active Substance: ACETAMINOPHEN
  4. AMIODARONE [Concomitant]
     Active Substance: AMIODARONE
  5. DOCUSATE SODIUM [Concomitant]
     Active Substance: DOCUSATE SODIUM
  6. DOXYCYCLINE HYCLATE [Concomitant]
     Active Substance: DOXYCYCLINE HYCLATE
  7. DULOXETINE [Concomitant]
     Active Substance: DULOXETINE
  8. FENTANYL [Concomitant]
     Active Substance: FENTANYL
  9. FERROUS SULFATE [Concomitant]
     Active Substance: FERROUS SULFATE
  10. ELIQUIS [Concomitant]
     Active Substance: APIXABAN
  11. JAKAFI [Concomitant]
     Active Substance: RUXOLITINIB
  12. METOPROLOL TARTRATE [Concomitant]
     Active Substance: METOPROLOL TARTRATE
  13. BACLOFEN [Concomitant]
     Active Substance: BACLOFEN
  14. VITAMINS NOS [Concomitant]
     Active Substance: VITAMINS
  15. SENNA LEAF [Concomitant]
     Active Substance: SENNA LEAF
  16. TERAZOSIN [Concomitant]
     Active Substance: TERAZOSIN HYDROCHLORIDE
  17. ZETIA [Concomitant]
     Active Substance: EZETIMIBE

REACTIONS (1)
  - Cardiac disorder [Unknown]
